FAERS Safety Report 10225307 (Version 3)
Quarter: 2014Q2

REPORT INFORMATION
  Report Type: Spontaneous
  Country: US (occurrence: US)
  Receive Date: 20140609
  Receipt Date: 20140623
  Transmission Date: 20141212
  Serious: Yes (Hospitalization)
  Sender: FDA-Public Use
  Company Number: US-009507513-1406USA001180

PATIENT
  Sex: Female

DRUGS (2)
  1. ISENTRESS [Suspect]
     Indication: PROPHYLAXIS
     Dosage: UNK
     Route: 048
     Dates: start: 20140519, end: 2014
  2. TRUVADA [Concomitant]
     Dosage: UNK
     Dates: start: 20140519

REACTIONS (2)
  - Chest pain [Recovered/Resolved]
  - Cardiac stress test abnormal [Recovered/Resolved]
